FAERS Safety Report 23736239 (Version 2)
Quarter: 2025Q3

REPORT INFORMATION
  Report Type: Report from Study
  Country: CA (occurrence: CA)
  Receive Date: 20240412
  Receipt Date: 20250903
  Transmission Date: 20251021
  Serious: Yes (Other)
  Sender: TAKEDA
  Company Number: CA-TAKEDA-2024TUS033451

PATIENT
  Sex: Female

DRUGS (10)
  1. VEDOLIZUMAB [Suspect]
     Active Substance: VEDOLIZUMAB
     Indication: Colitis microscopic
  2. VEDOLIZUMAB [Suspect]
     Active Substance: VEDOLIZUMAB
  3. BUDESONIDE [Concomitant]
     Active Substance: BUDESONIDE
  4. MESALAMINE [Concomitant]
     Active Substance: MESALAMINE
     Dosage: 4 GRAM, QD
     Dates: start: 202307
  5. CANDESARTAN [Concomitant]
     Active Substance: CANDESARTAN
  6. FEBUXOSTAT [Concomitant]
     Active Substance: FEBUXOSTAT
  7. OMEPRAZOLE [Concomitant]
     Active Substance: OMEPRAZOLE
  8. ASPIRIN [Concomitant]
     Active Substance: ASPIRIN
  9. ALBUTEROL [Concomitant]
     Active Substance: ALBUTEROL
  10. CANNABIDIOL [Concomitant]
     Active Substance: CANNABIDIOL

REACTIONS (2)
  - Atrial fibrillation [Unknown]
  - Dizziness [Recovered/Resolved]
